FAERS Safety Report 9932860 (Version 2)
Quarter: 2014Q1

REPORT INFORMATION
  Report Type: Spontaneous
  Country: None (occurrence: US)
  Receive Date: 20140228
  Receipt Date: 20140228
  Transmission Date: 20141002
  Serious: No
  Sender: FDA-Public Use
  Company Number: US-ABBVIE-13P-163-1058775-00

PATIENT
  Sex: Male
  Weight: 93.07 kg

DRUGS (2)
  1. ANDROGEL 1% [Suspect]
     Indication: BLOOD TESTOSTERONE DECREASED
     Dosage: 5 GRAM PACKET/1PKT DAILY
     Route: 061
     Dates: start: 20130121, end: 20130521
  2. ANDROGEL 1% [Suspect]
     Indication: HYPOGONADISM

REACTIONS (1)
  - Drug ineffective [Not Recovered/Not Resolved]
